FAERS Safety Report 21445596 (Version 1)
Quarter: 2022Q4

REPORT INFORMATION
  Report Type: Spontaneous
  Country: FR (occurrence: FR)
  Receive Date: 20221012
  Receipt Date: 20221012
  Transmission Date: 20230112
  Serious: Yes (Other)
  Sender: FDA-Public Use
  Company Number: None

PATIENT
  Age: 50 Year
  Sex: Female
  Weight: 62 kg

DRUGS (6)
  1. CARBOPLATIN [Suspect]
     Active Substance: CARBOPLATIN
     Indication: Triple negative breast cancer
     Route: 042
     Dates: start: 20220920
  2. PACLITAXEL [Concomitant]
     Active Substance: PACLITAXEL
     Indication: Triple negative breast cancer
     Dosage: DILUTABLE SOLUTION FOR INFUSION
     Route: 042
     Dates: start: 20220712
  3. METHYLPREDNISOLONE [Concomitant]
     Active Substance: METHYLPREDNISOLONE
     Indication: Chemotherapy side effect prophylaxis
     Dosage: POWDER FOR INJECTABLE SOLUTION (IM-IV)
     Dates: start: 20220712
  4. KEYTRUDA [Concomitant]
     Active Substance: PEMBROLIZUMAB
     Indication: Triple negative breast cancer
     Route: 042
     Dates: start: 20220712
  5. ONDANSETRON ACCORD 2 mg/ml, solution injectable/injectable solution [Concomitant]
     Indication: Chemotherapy side effect prophylaxis
     Dates: start: 20220712
  6. POLARAMINE 5 mg/1 ml, solution injectable/injectable solution [Concomitant]
     Indication: Chemotherapy side effect prophylaxis
     Dosage: 2,5MG
     Dates: start: 20220712

REACTIONS (1)
  - Anaphylactoid reaction [Recovered/Resolved]

NARRATIVE: CASE EVENT DATE: 20220920
